FAERS Safety Report 8430649-0 (Version None)
Quarter: 2012Q2

REPORT INFORMATION
  Report Type: 
  Country: None (occurrence: None)
  Receive Date: 20120612
  Receipt Date: 20120605
  Transmission Date: 20120825
  Serious: Yes (Hospitalization, Disabling)
  Sender: FDA-Public Use
  Company Number: NO-PFIZER INC-2012077865

PATIENT
  Age: 67 Year
  Sex: Female

DRUGS (5)
  1. VIVAL [Concomitant]
     Dosage: 5 MG, 1X/DAY
     Route: 048
  2. LERCANIDIPINE [Suspect]
     Indication: HYPERTENSION
     Dosage: 10 MG, 1X/DAY
     Route: 048
  3. ASPIRIN [Concomitant]
     Dosage: 75 MG, 1X/DAY
     Route: 048
  4. FURIX RETARD [Concomitant]
     Indication: HYPERTENSION
     Route: 048
  5. NORVASC [Suspect]
     Indication: HYPERTENSION
     Dosage: 5 MG, 1X/DAY
     Route: 048
     Dates: start: 20120301, end: 20120301

REACTIONS (9)
  - DERMATITIS [None]
  - ALLERGY TO CHEMICALS [None]
  - PANIC ATTACK [None]
  - OEDEMA [None]
  - RASH [None]
  - DRY EYE [None]
  - PHOTOSENSITIVITY REACTION [None]
  - CHRONIC OBSTRUCTIVE PULMONARY DISEASE [None]
  - DEPRESSED MOOD [None]
